FAERS Safety Report 6677273-8 (Version None)
Quarter: 2010Q2

REPORT INFORMATION
  Report Type: 
  Country: None (occurrence: None)
  Receive Date: 20100412
  Receipt Date: 20100401
  Transmission Date: 20101027
  Serious: Yes (Hospitalization)
  Sender: FDA-Public Use
  Company Number: US-ELI_LILLY_AND_COMPANY-US201004000286

PATIENT
  Sex: Female
  Weight: 96.145 kg

DRUGS (5)
  1. BYETTA [Suspect]
     Indication: TYPE 2 DIABETES MELLITUS
     Dosage: 10 UG, 2/D
     Dates: start: 20050101
  2. MICARDIS [Concomitant]
     Indication: HYPERTENSION
     Dosage: UNK, EACH MORNING
  3. VYTORIN [Concomitant]
     Dosage: UNK, DAILY (1/D)
  4. FOLIC ACID [Concomitant]
     Dosage: 800 UG, DAILY (1/D)
  5. PLAVIX [Concomitant]
     Dosage: 75 MG, DAILY (1/D)

REACTIONS (5)
  - DRUG DOSE OMISSION [None]
  - DRY MOUTH [None]
  - INTERVERTEBRAL DISC PROTRUSION [None]
  - PAIN [None]
  - WEIGHT DECREASED [None]
